FAERS Safety Report 19787223 (Version 1)
Quarter: 2021Q3

REPORT INFORMATION
  Report Type: Spontaneous
  Country: JP (occurrence: JP)
  Receive Date: 20210903
  Receipt Date: 20210903
  Transmission Date: 20211014
  Serious: Yes (Death, Hospitalization, Other)
  Sender: FDA-Public Use
  Company Number: JP-GILEAD-2021-0546458

PATIENT
  Age: 43 Year
  Sex: Female

DRUGS (4)
  1. COBICISTAT;DARUNAVIR ETHANOLATE [Concomitant]
     Active Substance: COBICISTAT\DARUNAVIR ETHANOLATE
     Indication: HIV INFECTION
     Route: 048
  2. RALTEGRAVIR POTASSIUM [Concomitant]
     Active Substance: RALTEGRAVIR POTASSIUM
     Indication: HIV INFECTION
  3. TRUVADA [Suspect]
     Active Substance: EMTRICITABINE\TENOFOVIR DISOPROXIL FUMARATE
     Indication: HIV INFECTION
     Dosage: UNK
     Route: 048
  4. CEFAZOLIN SODIUM. [Concomitant]
     Active Substance: CEFAZOLIN SODIUM
     Indication: INFECTION PROPHYLAXIS
     Dosage: 1 G, ONCE

REACTIONS (8)
  - Metastases to muscle [Fatal]
  - Breast cancer metastatic [Fatal]
  - Invasive ductal breast carcinoma [Fatal]
  - Metastases to central nervous system [Fatal]
  - Breast cancer stage IV [Fatal]
  - Metastases to lung [Fatal]
  - Breast cancer recurrent [Fatal]
  - Disease progression [Fatal]
